FAERS Safety Report 17230238 (Version 3)
Quarter: 2023Q1

REPORT INFORMATION
  Report Type: Report from Study
  Country: DE (occurrence: DE)
  Receive Date: 20200103
  Receipt Date: 20230316
  Transmission Date: 20230418
  Serious: Yes (Hospitalization)
  Sender: FDA-Public Use
  Company Number: DE-ACCORD-155329

PATIENT
  Sex: Female
  Weight: 90 kg

DRUGS (6)
  1. PEGFILGRASTIM [Suspect]
     Active Substance: PEGFILGRASTIM
     Indication: Product used for unknown indication
     Dosage: UNK UNK, CYCLE, 1ST CYCLE
     Route: 065
     Dates: start: 20190524
  2. PEGFILGRASTIM [Suspect]
     Active Substance: PEGFILGRASTIM
     Dosage: UNK UNK, CYCLE UNK, 3RD CYCLE
     Route: 065
     Dates: start: 20190614
  3. PEGFILGRASTIM [Suspect]
     Active Substance: PEGFILGRASTIM
     Dosage: UNK UNK, CYCLE UNK, 3RD CYCLE
     Route: 065
     Dates: start: 20190705
  4. PEGFILGRASTIM [Suspect]
     Active Substance: PEGFILGRASTIM
     Dosage: 6 MILLIGRAM, CYCLE 6 MIL
     Route: 065
     Dates: start: 20190816
  5. CARBOPLATIN [Suspect]
     Active Substance: CARBOPLATIN
     Indication: Endometrial cancer
     Dosage: 149 MILLIGRAM, QD,149 MG, QD
     Route: 042
     Dates: start: 20190822, end: 20190822
  6. GEMCITABINE [Suspect]
     Active Substance: GEMCITABINE
     Indication: Endometrial cancer
     Dosage: 2000 MILLIGRAM, QD, 2000 MG, QD
     Route: 042
     Dates: start: 20190822, end: 20190822

REACTIONS (5)
  - General physical health deterioration [Recovered/Resolved]
  - Pancytopenia [Recovered/Resolved]
  - Febrile neutropenia [Recovered/Resolved]
  - Sepsis [Recovered/Resolved]
  - Off label use [Unknown]

NARRATIVE: CASE EVENT DATE: 20190828
